FAERS Safety Report 23192129 (Version 1)
Quarter: 2023Q4

REPORT INFORMATION
  Report Type: Spontaneous
  Country: US (occurrence: US)
  Receive Date: 20231116
  Receipt Date: 20231116
  Transmission Date: 20240109
  Serious: Yes (Other)
  Sender: FDA-Public Use
  Company Number: US-ORGANON-O2311USA001523

PATIENT
  Age: 25 Year
  Sex: Female
  Weight: 93.787 kg

DRUGS (1)
  1. NEXPLANON [Suspect]
     Active Substance: ETONOGESTREL
     Dosage: 1 IMPLANT RIGHT ARM, ONE EVERY THREE YEARS
     Route: 059
     Dates: start: 202110

REACTIONS (6)
  - Device dislocation [Not Recovered/Not Resolved]
  - Implant site bruising [Unknown]
  - Limb injury [Unknown]
  - Device breakage [Not Recovered/Not Resolved]
  - Complication associated with device [Not Recovered/Not Resolved]
  - Device issue [Unknown]

NARRATIVE: CASE EVENT DATE: 20231106
